FAERS Safety Report 4445520-9 (Version None)
Quarter: 2004Q3

REPORT INFORMATION
  Report Type: 
  Country: None (occurrence: None)
  Receive Date: 20040910
  Receipt Date: 20040901
  Transmission Date: 20050211
  Serious: Yes (Death, Life-Threatening, Hospitalization, Disabling)
  Sender: FDA-Public Use
  Company Number: GB-JNJFOC-20040900543

PATIENT
  Age: 76 Year
  Sex: Female
  Weight: 80 kg

DRUGS (13)
  1. REMICADE [Suspect]
     Route: 042
  2. REMICADE [Suspect]
     Route: 042
  3. REMICADE [Suspect]
     Indication: RHEUMATOID ARTHRITIS
     Route: 042
  4. METHOTREXATE [Suspect]
     Indication: RHEUMATOID ARTHRITIS
     Route: 049
  5. PARACETAMOL [Concomitant]
     Indication: RHEUMATOID ARTHRITIS
     Route: 049
  6. PARACETAMOL [Concomitant]
     Indication: PAIN
     Route: 049
  7. TRAMADOL HCL [Concomitant]
     Indication: RHEUMATOID ARTHRITIS
     Route: 049
  8. TRAMADOL HCL [Concomitant]
     Indication: PAIN
     Route: 049
  9. ROFECOXIB [Concomitant]
     Indication: RHEUMATOID ARTHRITIS
     Route: 049
  10. ROFECOXIB [Concomitant]
     Indication: PAIN
     Route: 049
  11. QUININE [Concomitant]
     Indication: RHEUMATOID ARTHRITIS
     Route: 049
  12. QUININE [Concomitant]
     Indication: PAIN
     Dosage: OD PRN
     Route: 049
  13. IRON SULPHATE [Concomitant]
     Indication: ANAEMIA
     Route: 049

REACTIONS (15)
  - ABDOMINAL PAIN [None]
  - ANAEMIA [None]
  - ASPERGILLOSIS [None]
  - BLOOD CREATININE ABNORMAL [None]
  - BLOOD UREA ABNORMAL [None]
  - DIARRHOEA [None]
  - FEELING ABNORMAL [None]
  - LIVER FUNCTION TEST ABNORMAL [None]
  - METABOLIC ACIDOSIS [None]
  - PNEUMOCYSTIS CARINII PNEUMONIA [None]
  - PNEUMONITIS [None]
  - RENAL FAILURE [None]
  - RESPIRATORY FAILURE [None]
  - TROPONIN I INCREASED [None]
  - VOMITING [None]
